FAERS Safety Report 24703114 (Version 1)
Quarter: 2024Q4

REPORT INFORMATION
  Report Type: Spontaneous
  Country: CN (occurrence: CN)
  Receive Date: 20241205
  Receipt Date: 20241205
  Transmission Date: 20250114
  Serious: Yes (Hospitalization, Other)
  Sender: PFIZER
  Company Number: CN-PFIZER INC-PV202400157170

PATIENT
  Age: 38 Year
  Sex: Male

DRUGS (4)
  1. METHOTREXATE SODIUM [Suspect]
     Active Substance: METHOTREXATE SODIUM
     Indication: Neoplasm
     Dosage: 8 G, 1X/DAY
     Route: 041
     Dates: start: 20241013, end: 20241013
  2. CYTARABINE [Concomitant]
     Active Substance: CYTARABINE
     Indication: Neoplasm
     Dosage: 4 MG, 1X/DAY
     Route: 041
     Dates: start: 20241013, end: 20241013
  3. PEGASPARGASE [Concomitant]
     Active Substance: PEGASPARGASE
     Indication: Neoplasm
     Dosage: 3750 IU, 1X/DAY
     Route: 041
     Dates: start: 20241013, end: 20241013
  4. VINDESINE SULFATE [Concomitant]
     Active Substance: VINDESINE SULFATE
     Indication: Neoplasm
     Dosage: 4 MG, 1X/DAY
     Route: 041
     Dates: start: 20241013, end: 20241013

REACTIONS (1)
  - Neurotoxicity [Not Recovered/Not Resolved]

NARRATIVE: CASE EVENT DATE: 20241016
